FAERS Safety Report 6076560-4 (Version None)
Quarter: 2009Q1

REPORT INFORMATION
  Report Type: 
  Country: None (occurrence: None)
  Receive Date: 20090213
  Receipt Date: 20090211
  Transmission Date: 20090719
  Serious: Yes (Other)
  Sender: FDA-Public Use
  Company Number: FR-BRISTOL-MYERS SQUIBB COMPANY-14503221

PATIENT
  Age: 67 Year
  Sex: Female

DRUGS (2)
  1. ECAZIDE TABS 50 MG/25 MG [Suspect]
     Indication: HYPERTENSION
     Dosage: 1 DF=1 TAB;OLD FORM:ECAZIDE 1TAB/D FROM MAY 1989.NEW FORM-W/OUT LAKE OF SUNSET YELLOW S(E110)
     Dates: start: 20090208
  2. CELEBREX [Suspect]
     Indication: OSTEOARTHRITIS
     Dates: start: 20090126

REACTIONS (1)
  - HYPERTENSION [None]
